FAERS Safety Report 6527629-9 (Version None)
Quarter: 2010Q1

REPORT INFORMATION
  Report Type: 
  Country: None (occurrence: None)
  Receive Date: 20100105
  Receipt Date: 20091224
  Transmission Date: 20100710
  Serious: Yes (Other)
  Sender: FDA-Public Use
  Company Number: CN-PFIZER INC-2009314086

PATIENT
  Age: 25 Year
  Sex: Male

DRUGS (1)
  1. ZOLOFT [Suspect]
     Indication: DEPRESSION
     Dosage: 50MG
     Route: 048
     Dates: start: 20091223

REACTIONS (2)
  - DEPRESSED LEVEL OF CONSCIOUSNESS [None]
  - NAUSEA [None]
